FAERS Safety Report 16841668 (Version 2)
Quarter: 2019Q4

REPORT INFORMATION
  Report Type: Spontaneous
  Country: BE (occurrence: BE)
  Receive Date: 20190923
  Receipt Date: 20191004
  Transmission Date: 20200122
  Serious: Yes (Death, Life-Threatening, Hospitalization, Other)
  Sender: FDA-Public Use
  Company Number: BE-BAUSCH-BL-2019-026391

PATIENT
  Age: 65 Year
  Sex: Female

DRUGS (13)
  1. BUPROPION HYDROCHLORIDE. [Suspect]
     Active Substance: BUPROPION HYDROCHLORIDE
     Indication: MENTAL DISORDER
     Route: 065
  2. AMITRIPTYLINE [Suspect]
     Active Substance: AMITRIPTYLINE
     Indication: MENTAL DISORDER
     Route: 065
  3. NEFOPAM [Suspect]
     Active Substance: NEFOPAM
     Route: 048
  4. ARIPIPRAZOLE. [Suspect]
     Active Substance: ARIPIPRAZOLE
     Indication: MENTAL DISORDER
     Route: 065
  5. TRAMADOL. [Suspect]
     Active Substance: TRAMADOL
     Indication: MENTAL DISORDER
     Route: 065
  6. EPINEPHRINE. [Concomitant]
     Active Substance: EPINEPHRINE
     Indication: PRODUCT USED FOR UNKNOWN INDICATION
  7. EPINEPHRINE. [Suspect]
     Active Substance: EPINEPHRINE
     Indication: PRODUCT USED FOR UNKNOWN INDICATION
     Dosage: (UP TO 6 MICRO-GRAM/KG/MIN)
     Route: 042
  8. NEFOPAM [Suspect]
     Active Substance: NEFOPAM
     Indication: ANALGESIC THERAPY
     Route: 048
  9. AMISULPRIDE [Suspect]
     Active Substance: AMISULPRIDE
     Indication: MENTAL DISORDER
     Route: 065
  10. MIRTAZAPINE. [Suspect]
     Active Substance: MIRTAZAPINE
     Indication: MENTAL DISORDER
     Route: 065
  11. DIAZEPAM. [Suspect]
     Active Substance: DIAZEPAM
     Indication: PRODUCT USED FOR UNKNOWN INDICATION
     Route: 065
  12. NEFOPAM [Suspect]
     Active Substance: NEFOPAM
     Route: 048
  13. NOREPINEPHRINE. [Suspect]
     Active Substance: NOREPINEPHRINE
     Indication: SUPRAVENTRICULAR TACHYCARDIA
     Dosage: (UP TO 6 MICRO-GRAM/KG/MIN)
     Route: 042

REACTIONS (14)
  - Hyperhidrosis [Fatal]
  - Haemodynamic instability [Unknown]
  - Myoclonus [Fatal]
  - Serotonin syndrome [Fatal]
  - Shock [Fatal]
  - Dyspnoea [Fatal]
  - Autonomic nervous system imbalance [Fatal]
  - Loss of consciousness [Unknown]
  - Chronic obstructive pulmonary disease [Not Recovered/Not Resolved]
  - Mydriasis [Fatal]
  - Respiratory failure [Unknown]
  - Hyperlactacidaemia [Unknown]
  - Supraventricular tachycardia [Unknown]
  - Drug ineffective [Unknown]
